FAERS Safety Report 8556535-3 (Version None)
Quarter: 2012Q3

REPORT INFORMATION
  Report Type: 
  Country: None (occurrence: None)
  Receive Date: 20120801
  Receipt Date: 20120723
  Transmission Date: 20120928
  Serious: Yes (Hospitalization)
  Sender: FDA-Public Use
  Company Number: US-BAYER-201013985NA

PATIENT
  Age: 38 Year
  Sex: Female
  Weight: 151.93 kg

DRUGS (4)
  1. LORAZEPAM [Concomitant]
  2. YASMIN [Suspect]
     Indication: PRODUCT USED FOR UNKNOWN INDICATION
     Dosage: UNK
     Route: 048
     Dates: start: 20040401, end: 20100101
  3. TOPAMAX [Concomitant]
  4. DROSPIRENONE AND ETHINYL ESTRADIOL [Suspect]
     Dosage: UNK
     Dates: start: 20040401, end: 20100101

REACTIONS (4)
  - DEPRESSION [None]
  - ANXIETY [None]
  - CHOLECYSTECTOMY [None]
  - INJURY [None]
